FAERS Safety Report 8501353-5 (Version None)
Quarter: 2012Q3

REPORT INFORMATION
  Report Type: 
  Country: None (occurrence: None)
  Receive Date: 20120710
  Receipt Date: 20120626
  Transmission Date: 20120928
  Serious: Yes (Other)
  Sender: FDA-Public Use
  Company Number: CH-FRI-1000036844

PATIENT
  Age: 73 Year
  Sex: Male

DRUGS (3)
  1. SYMBICORT [Concomitant]
     Dosage: 2X200/6
  2. SPIRIVA [Concomitant]
     Dosage: 0.0333 DF
  3. ROFLUMILAST [Suspect]
     Indication: CHRONIC OBSTRUCTIVE PULMONARY DISEASE
     Dosage: 500 MCG
     Dates: start: 20120401, end: 20120402

REACTIONS (3)
  - DEPRESSION [None]
  - ANXIETY [None]
  - RESTLESSNESS [None]
